FAERS Safety Report 15845438 (Version 2)
Quarter: 2019Q1

REPORT INFORMATION
  Report Type: Report from Study
  Country: JP (occurrence: JP)
  Receive Date: 20190119
  Receipt Date: 20190225
  Transmission Date: 20190417
  Serious: Yes (Death, Life-Threatening, Hospitalization, Other)
  Sender: FDA-Public Use
  Company Number: PHJP2016JP033728

PATIENT
  Age: 54 Year
  Sex: Female

DRUGS (5)
  1. ZYKADIA [Suspect]
     Active Substance: CERITINIB
     Indication: NON-SMALL CELL LUNG CANCER STAGE IV
     Dosage: 300 MG, QD
     Route: 048
     Dates: start: 20161013, end: 20161024
  2. RANMARK [Concomitant]
     Active Substance: DENOSUMAB
     Indication: NON-SMALL CELL LUNG CANCER STAGE IV
     Dosage: 120 MG, QD
     Dates: start: 20161020
  3. ZYKADIA [Suspect]
     Active Substance: CERITINIB
     Dosage: 450 MG, QD
     Route: 048
     Dates: start: 20161025, end: 20161130
  4. ZYKADIA [Suspect]
     Active Substance: CERITINIB
     Dosage: 750 MG, QD
     Route: 048
     Dates: start: 20161216, end: 20170701
  5. ZYKADIA [Suspect]
     Active Substance: CERITINIB
     Dosage: 600 MG, QD
     Route: 048
     Dates: start: 20161201, end: 20161215

REACTIONS (12)
  - Malignant pleural effusion [Fatal]
  - Electrocardiogram T wave inversion [Recovering/Resolving]
  - Vomiting [Recovering/Resolving]
  - Depressed level of consciousness [Unknown]
  - Diarrhoea [Recovered/Resolved]
  - Pulmonary embolism [Recovering/Resolving]
  - Pulmonary hypertension [Unknown]
  - General physical health deterioration [Unknown]
  - Nausea [Fatal]
  - Dysphagia [Unknown]
  - Dyspnoea [Unknown]
  - Blood creatinine increased [Recovered/Resolved]

NARRATIVE: CASE EVENT DATE: 20161020
